FAERS Safety Report 4857089-5 (Version None)
Quarter: 2005Q4

REPORT INFORMATION
  Report Type: 
  Country: None (occurrence: None)
  Receive Date: 20051219
  Receipt Date: 20041223
  Transmission Date: 20060501
  Serious: No
  Sender: FDA-Public Use
  Company Number: US-GLAXOSMITHKLINE-A0538484A

PATIENT

DRUGS (1)
  1. TARGET NTS 21MG [Suspect]
     Dates: start: 20041209

REACTIONS (4)
  - ABDOMINAL PAIN [None]
  - ABNORMAL BEHAVIOUR [None]
  - ANXIETY [None]
  - FLATULENCE [None]
